FAERS Safety Report 9787283 (Version 3)
Quarter: 2014Q1

REPORT INFORMATION
  Report Type: Report from Study
  Country: CA (occurrence: CA)
  Receive Date: 20131230
  Receipt Date: 20140114
  Transmission Date: 20141002
  Serious: Yes (Hospitalization)
  Sender: FDA-Public Use
  Company Number: CA-ROCHE-1324501

PATIENT
  Age: 60 Year
  Sex: Male
  Weight: 63.1 kg

DRUGS (17)
  1. OBINUTUZUMAB [Suspect]
     Indication: DIFFUSE LARGE B-CELL LYMPHOMA
     Dosage: VOLUME OF LAST DOSE OF OBINUTUZUMAB (GA101) 250 ML AND VOLUME UNIT OF GA 101 WAS 4 MG/ML.   ON 02/DE
     Route: 042
     Dates: start: 20130729
  2. CYCLOPHOSPHAMIDE [Suspect]
     Indication: DIFFUSE LARGE B-CELL LYMPHOMA
     Dosage: ON 12/NOV/2013, MOST RECENT DOSE 1260 MG OF CYCLOPHOSPHAMIDE PRIOR TO AE.
     Route: 042
     Dates: start: 20130730
  3. DOXORUBICIN [Suspect]
     Indication: DIFFUSE LARGE B-CELL LYMPHOMA
     Dosage: ON 12/NOV/2013, MOST RECENT DOSE 84 MG OF DOXORUBICIN PRIOR TO AE
     Route: 042
     Dates: start: 20130730
  4. VINCRISTINE [Suspect]
     Indication: DIFFUSE LARGE B-CELL LYMPHOMA
     Dosage: ON 12/NOV/2013, MOST RECENT DOSE 2 MG OF VINCRISTINE PRIOR TO AE
     Route: 040
     Dates: start: 20130730
  5. PREDNISONE [Suspect]
     Indication: DIFFUSE LARGE B-CELL LYMPHOMA
     Dosage: LAST DOSE PRIOR TO SAE 100 MG ON 16/NOV/2013
     Route: 065
     Dates: start: 20130730
  6. ATORVASTATIN [Concomitant]
     Indication: DYSLIPIDAEMIA
     Route: 065
     Dates: start: 201305
  7. ASPIRIN [Concomitant]
     Indication: THROMBOSIS PROPHYLAXIS
  8. FLOVENT [Concomitant]
     Indication: CHRONIC OBSTRUCTIVE PULMONARY DISEASE
  9. ATROVENT INHALER [Concomitant]
     Indication: CHRONIC OBSTRUCTIVE PULMONARY DISEASE
  10. SALBUTAMOL [Concomitant]
     Indication: CHRONIC OBSTRUCTIVE PULMONARY DISEASE
  11. DOCUSATE SODIUM [Concomitant]
     Indication: CONSTIPATION
  12. ATIVAN [Concomitant]
     Indication: SLEEP DISORDER
  13. RABEPRAZOLE [Concomitant]
     Indication: GASTROOESOPHAGEAL REFLUX DISEASE
     Route: 065
     Dates: start: 20130826
  14. CHAMPIX [Concomitant]
     Indication: EX-TOBACCO USER
     Route: 065
     Dates: start: 20130927
  15. MOXIFLOXACIN [Concomitant]
     Indication: NASOPHARYNGITIS
     Route: 065
     Dates: start: 20131223, end: 20131230
  16. MAGNESIUM OXIDE [Concomitant]
     Indication: HYPOMAGNESAEMIA
     Route: 065
     Dates: start: 20131223, end: 20131230
  17. POTASSIUM CHLORIDE [Concomitant]
     Indication: HYPOKALAEMIA
     Route: 065
     Dates: start: 20131223, end: 20131230

REACTIONS (1)
  - Febrile neutropenia [Recovered/Resolved]
